FAERS Safety Report 6056430-8 (Version None)
Quarter: 2009Q1

REPORT INFORMATION
  Report Type: 
  Country: None (occurrence: None)
  Receive Date: 20090126
  Receipt Date: 20090126
  Transmission Date: 20090719
  Serious: No
  Sender: FDA-Public Use
  Company Number: None

PATIENT
  Sex: Female
  Weight: 76.2043 kg

DRUGS (2)
  1. BYETTA [Suspect]
     Indication: DIABETES MELLITUS
     Dosage: 1 SHOT 1 X DAY SYRINGE
     Dates: start: 20080515
  2. BYETTA [Suspect]
     Indication: DIABETES MELLITUS
     Dosage: 1 SHOT 1 X DAY SYRINGE
     Dates: start: 20080519

REACTIONS (9)
  - ASTHENIA [None]
  - BLOOD PRESSURE INCREASED [None]
  - CHILLS [None]
  - ERUCTATION [None]
  - EXTRASYSTOLES [None]
  - GASTROOESOPHAGEAL REFLUX DISEASE [None]
  - HEADACHE [None]
  - PALPITATIONS [None]
  - TREMOR [None]
